FAERS Safety Report 5421999-0 (Version None)
Quarter: 2007Q3

REPORT INFORMATION
  Report Type: 
  Country: None (occurrence: None)
  Receive Date: 20070822
  Receipt Date: 20070814
  Transmission Date: 20080115
  Serious: Yes (Other)
  Sender: FDA-Public Use
  Company Number: PHBS2007JP11037

PATIENT
  Age: 64 Year
  Sex: Female

DRUGS (7)
  1. NEORAL [Suspect]
     Indication: COLLAGEN DISORDER
     Dosage: 100 MG/DAY
     Route: 048
     Dates: start: 20070605, end: 20070622
  2. ANTI-RHEUMATIC AGENT [Concomitant]
  3. PREDONINE [Concomitant]
     Route: 048
  4. ADALAT [Concomitant]
     Route: 065
  5. FAMOTIDINE [Concomitant]
     Route: 064
  6. BONALON [Concomitant]
     Dosage: 5 MG, UNK
     Route: 065
  7. HYPEN [Concomitant]
     Route: 048

REACTIONS (3)
  - C-REACTIVE PROTEIN INCREASED [None]
  - PYREXIA [None]
  - WHITE BLOOD CELL COUNT INCREASED [None]
